FAERS Safety Report 8322183-3 (Version None)
Quarter: 2012Q2

REPORT INFORMATION
  Report Type: 
  Country: None (occurrence: None)
  Receive Date: 20120430
  Receipt Date: 20110728
  Transmission Date: 20120825
  Serious: No
  Sender: FDA-Public Use
  Company Number: US-COVIDIEN/TYCO HEALTHCARE/MALLINCKRODT-T201101512

PATIENT
  Sex: Female
  Weight: 68.027 kg

DRUGS (2)
  1. HYDROCODONE BITARTRATE + ACETAMINOPHEN [Suspect]
     Dosage: 5/500 MG Q4-6 HOURS PRN
     Route: 048
     Dates: start: 20110727
  2. NATURAL THYROID [Concomitant]
     Indication: AUTOIMMUNE THYROIDITIS
     Dosage: 75 MG IN AM, 65 MG IN PM
     Route: 048

REACTIONS (2)
  - NAUSEA [None]
  - ABDOMINAL PAIN UPPER [None]
